FAERS Safety Report 8777389 (Version 1)
Quarter: 2012Q4

REPORT INFORMATION
  Report Type: 
  Country: CA (occurrence: CA)
  Receive Date: 20120911
  Receipt Date: 20120911
  Transmission Date: 20130627
  Serious: Yes (Death, Other)
  Sender: FDA-Public Use
  Company Number: CA-WATSON-2012-15423

PATIENT
  Age: 36 Year
  Sex: Female

DRUGS (3)
  1. PREDNISONE (UNKNOWN) [Suspect]
     Indication: LUNG TRANSPLANT
     Dosage: UNK
     Route: 065
  2. TACROLIMUS (UNKNOWN) [Suspect]
     Indication: LUNG TRANSPLANT
     Dosage: UNK
     Route: 065
  3. AZATHIOPRINE (UNKNOWN) [Suspect]
     Indication: LUNG TRANSPLANT
     Dosage: UNK
     Route: 065

REACTIONS (4)
  - Pseudomonas infection [Fatal]
  - Bacteraemia [Fatal]
  - Pathogen resistance [Fatal]
  - Sinusitis [Recovering/Resolving]
